FAERS Safety Report 24445304 (Version 2)
Quarter: 2025Q3

REPORT INFORMATION
  Report Type: Spontaneous
  Country: EU (occurrence: EU)
  Receive Date: 20241016
  Receipt Date: 20250818
  Transmission Date: 20251021
  Serious: Yes (Other)
  Sender: MYLAN
  Company Number: EU-MSNLABS-2024MSNSPO02101

PATIENT

DRUGS (9)
  1. PREGABALIN [Suspect]
     Active Substance: PREGABALIN
     Indication: Arthralgia
     Dosage: 1 DOSAGE FORM, QD (TAKEN TWICE DAILY)
     Dates: start: 20240917
  2. PREGABALIN [Suspect]
     Active Substance: PREGABALIN
     Indication: Neuralgia
     Dosage: 1 DOSAGE FORM, QD (TAKEN TWICE DAILY)
     Dates: start: 20240918
  3. PREGABALIN [Suspect]
     Active Substance: PREGABALIN
     Indication: Osteoarthritis
  4. LEVOTHYROXINE SODIUM [Concomitant]
     Active Substance: LEVOTHYROXINE SODIUM
     Indication: Thyroid disorder
     Dosage: 1 DOSAGE FORM, QD (1 TABLET/DAY)
  5. METOPROLOL SUCCINATE [Concomitant]
     Active Substance: METOPROLOL SUCCINATE
     Indication: Coronary artery disease
     Dosage: 1 DOSAGE FORM, QD (1 TABLET /DAY)
  6. DIGITOXIN [Concomitant]
     Active Substance: DIGITOXIN
     Indication: Coronary artery disease
     Dosage: 1 DOSAGE FORM, QD (1 TABLET/DAY)
  7. HYDROMORPHONE [Concomitant]
     Active Substance: HYDROMORPHONE
     Indication: Product used for unknown indication
     Dosage: 2 DOSAGE FORM, QD
  8. TORSEMIDE [Concomitant]
     Active Substance: TORSEMIDE
     Indication: Coronary artery disease
     Dosage: 1 DOSAGE FORM, QD (1 TABLET/DAY)
  9. SPIRONOLACTONE [Concomitant]
     Active Substance: SPIRONOLACTONE
     Indication: Product used for unknown indication
     Dosage: 1 DOSAGE FORM, QD (1 TABLET/DAY)

REACTIONS (4)
  - Loss of consciousness [Recovering/Resolving]
  - Contusion [Recovered/Resolved]
  - Somnolence [Recovered/Resolved]
  - Dizziness [Recovered/Resolved]

NARRATIVE: CASE EVENT DATE: 20240917
